FAERS Safety Report 15489299 (Version 5)
Quarter: 2018Q4

REPORT INFORMATION
  Report Type: Spontaneous
  Country: TW (occurrence: TW)
  Receive Date: 20181011
  Receipt Date: 20181212
  Transmission Date: 20190205
  Serious: Yes (Hospitalization)
  Sender: FDA-Public Use
  Company Number: TW-PFIZER INC-2018407482

PATIENT
  Age: 24 Year
  Sex: Male

DRUGS (3)
  1. BENEFIX [Suspect]
     Active Substance: COAGULATION FACTOR IX RECOMBINANT HUMAN\ISOPROPYL ALCOHOL
     Indication: FACTOR IX DEFICIENCY
     Dosage: 4000 IU, 2X/WEEK
     Route: 042
  2. BENEFIX [Suspect]
     Active Substance: COAGULATION FACTOR IX RECOMBINANT HUMAN\ISOPROPYL ALCOHOL
     Dosage: 3500 IU, QD
  3. BENEFIX [Suspect]
     Active Substance: COAGULATION FACTOR IX RECOMBINANT HUMAN\ISOPROPYL ALCOHOL
     Dosage: 5000 IU, QOD

REACTIONS (8)
  - Muscle swelling [Recovered/Resolved]
  - Muscle haemorrhage [Recovered/Resolved]
  - Joint swelling [Recovered/Resolved]
  - Haematoma [Recovered/Resolved]
  - Road traffic accident [Recovered/Resolved]
  - Lower limb fracture [Recovered/Resolved]
  - Skin abrasion [Recovered/Resolved]
  - Fibula fracture [Recovered/Resolved]

NARRATIVE: CASE EVENT DATE: 20180926
